FAERS Safety Report 8611350-7 (Version None)
Quarter: 2012Q3

REPORT INFORMATION
  Report Type: 
  Country: None (occurrence: None)
  Receive Date: 20120822
  Receipt Date: 20120814
  Transmission Date: 20120928
  Serious: Yes (Death)
  Sender: FDA-Public Use
  Company Number: DE-CELGENEUS-062-21880-12081332

PATIENT
  Age: 59 Year
  Sex: Male
  Weight: 94 kg

DRUGS (12)
  1. DOXICICLIN [Concomitant]
     Indication: ECZEMA
     Route: 065
  2. DEXAMETHASONE [Concomitant]
     Indication: MULTIPLE MYELOMA
     Dosage: 17.1429 MILLIGRAM
     Route: 065
  3. METAMIZOLE [Concomitant]
     Dosage: 3 DROPS
     Route: 065
  4. REVLIMID [Suspect]
     Indication: MULTIPLE MYELOMA
     Route: 048
     Dates: start: 20120612
  5. NADROPARIN-CALCIUM [Concomitant]
     Route: 058
  6. GAMMANORM [Concomitant]
     Indication: ECZEMA
     Dosage: 5.7143 MILLILITER
     Route: 058
  7. FLUCONAZOLE [Concomitant]
     Indication: ECZEMA
     Route: 065
  8. DURAGESIC-100 [Concomitant]
     Dosage: 8.3333
     Route: 065
  9. FRAXIPARINE [Concomitant]
     Indication: THROMBOSIS PROPHYLAXIS
     Route: 065
  10. PANTOPRAZOLE [Concomitant]
     Dosage: 40 MILLIGRAM
     Route: 065
  11. DEXAMETHASONE [Concomitant]
     Dosage: 5.7143 MILLIGRAM
     Route: 065
  12. GAMMANORM [Concomitant]
     Dosage: 4.2857 MILLILITER
     Route: 058

REACTIONS (1)
  - LEFT VENTRICULAR FAILURE [None]
